FAERS Safety Report 25619171 (Version 2)
Quarter: 2025Q4

REPORT INFORMATION
  Report Type: Report from Study
  Country: US (occurrence: US)
  Receive Date: 20250729
  Receipt Date: 20251107
  Transmission Date: 20260118
  Serious: Yes (Hospitalization)
  Sender: ALEXION PHARMACEUTICALS
  Company Number: US-AstraZeneca-CH-00915730A

PATIENT
  Sex: Female

DRUGS (1)
  1. ULTOMIRIS [Suspect]
     Active Substance: RAVULIZUMAB-CWVZ
     Indication: Neuromyelitis optica spectrum disorder
     Dosage: UNK
     Route: 065

REACTIONS (12)
  - Bacterial infection [Unknown]
  - Peripheral swelling [Unknown]
  - Erythema [Unknown]
  - Feeling hot [Unknown]
  - Chills [Recovered/Resolved]
  - Pyrexia [Recovered/Resolved]
  - Fatigue [Unknown]
  - Dry skin [Unknown]
  - Hyperkeratosis [Unknown]
  - Urinary tract infection [Unknown]
  - Sinus disorder [Unknown]
  - Sensory loss [Unknown]
